FAERS Safety Report 20015617 (Version 1)
Quarter: 2021Q4

REPORT INFORMATION
  Report Type: Spontaneous
  Country: US (occurrence: None)
  Receive Date: 20211101
  Receipt Date: 20211101
  Transmission Date: 20220303
  Serious: Yes (Death, Life-Threatening, Hospitalization, Disabling, Other)
  Sender: FDA-Public Use
  Company Number: None

PATIENT
  Age: 23 Year
  Sex: Male
  Weight: 78.75 kg

DRUGS (1)
  1. BENZEDREX [Suspect]
     Active Substance: PROPYLHEXEDRINE
     Indication: Euphoric mood
     Dosage: OTHER QUANTITY : 1 TUBES;?FREQUENCY : 4 TIMES A DAY;?
     Route: 048

REACTIONS (4)
  - Mania [None]
  - Drug dependence [None]
  - Intentional product misuse [None]
  - Delusion [None]

NARRATIVE: CASE EVENT DATE: 20150101
